FAERS Safety Report 8156497-7 (Version None)
Quarter: 2012Q1

REPORT INFORMATION
  Report Type: 
  Country: None (occurrence: None)
  Receive Date: 20120103
  Receipt Date: 20111025
  Transmission Date: 20120608
  Serious: No
  Sender: FDA-Public Use
  Company Number: AE-2011-002685

PATIENT
  Age: 49 Year
  Sex: Male
  Weight: 81.6475 kg

DRUGS (4)
  1. PEGASYS [Concomitant]
  2. INCIVEK [Suspect]
     Dosage: 2250 MG (750 MG, 3 IN 1 D), ORAL
     Route: 048
     Dates: start: 20110919
  3. RIBAVIRIN [Concomitant]
  4. ALBUTEROL [Concomitant]

REACTIONS (7)
  - HAEMORRHOIDS [None]
  - FATIGUE [None]
  - NAUSEA [None]
  - OVERDOSE [None]
  - DRUG DOSE OMISSION [None]
  - INFLUENZA LIKE ILLNESS [None]
  - DIZZINESS [None]
